FAERS Safety Report 10300991 (Version 2)
Quarter: 2014Q3

REPORT INFORMATION
  Report Type: Spontaneous
  Country: DE (occurrence: DE)
  Receive Date: 20140714
  Receipt Date: 20140723
  Transmission Date: 20150326
  Serious: Yes (Hospitalization, Other)
  Sender: FDA-Public Use
  Company Number: DE-RANBAXY-2014RR-83217

PATIENT
  Age: 72 Year
  Sex: Male

DRUGS (1)
  1. ACICLOVIR [Suspect]
     Active Substance: ACYCLOVIR
     Indication: HERPES ZOSTER
     Dosage: 800 MG, 5 TIMES A DAY
     Route: 048

REACTIONS (3)
  - Incorrect dosage administered [Recovering/Resolving]
  - Crystal nephropathy [Recovering/Resolving]
  - Renal failure acute [Recovering/Resolving]
